FAERS Safety Report 9051252 (Version 3)
Quarter: 2013Q1

REPORT INFORMATION
  Report Type: Report from Study
  Country: US (occurrence: US)
  Receive Date: 20130206
  Receipt Date: 20130313
  Transmission Date: 20140127
  Serious: Yes (Hospitalization)
  Sender: FDA-Public Use
  Company Number: US-JNJFOC-20130117005

PATIENT
  Age: 64 None
  Sex: Female
  Weight: 68.49 kg

DRUGS (19)
  1. STELARA [Suspect]
     Indication: PSORIASIS
     Route: 058
     Dates: start: 20121019, end: 20121116
  2. PREDNISONE [Suspect]
     Indication: PRODUCT USED FOR UNKNOWN INDICATION
     Route: 065
     Dates: start: 201301, end: 201301
  3. ADVAIR [Concomitant]
     Indication: EMPHYSEMA
     Route: 055
  4. TOPROL [Concomitant]
     Indication: CARDIAC DISORDER
     Route: 048
  5. ASPIRIN [Concomitant]
     Route: 048
  6. ZANTAC [Concomitant]
     Route: 048
  7. RELAFEN [Concomitant]
     Route: 048
  8. ULTRAM [Concomitant]
     Indication: PAIN
     Route: 048
  9. FLEXERIL [Concomitant]
     Route: 048
  10. FLONASE [Concomitant]
     Indication: MULTIPLE ALLERGIES
     Route: 055
  11. ALLERGY DESENSITIZING INJECTION [Concomitant]
     Indication: MULTIPLE ALLERGIES
     Route: 058
  12. ESTRADIOL [Concomitant]
     Route: 048
  13. MULTIVITAMINS [Concomitant]
  14. XOPENEX [Concomitant]
     Route: 055
  15. XOPENEX [Concomitant]
     Route: 055
  16. CLOBETASOL PROPIONATE [Concomitant]
     Indication: PSORIASIS
     Route: 061
  17. TACLONEX [Concomitant]
     Indication: PSORIASIS
     Route: 061
  18. CICLOPIROX [Concomitant]
     Indication: PSORIASIS
  19. SYSTANE [Concomitant]

REACTIONS (2)
  - Bronchiolitis [Recovering/Resolving]
  - Sinusitis [Recovering/Resolving]
